FAERS Safety Report 7700966-8 (Version None)
Quarter: 2011Q3

REPORT INFORMATION
  Report Type: 
  Country: None (occurrence: None)
  Receive Date: 20110817
  Receipt Date: 20110804
  Transmission Date: 20111222
  Serious: Yes (Hospitalization)
  Sender: FDA-Public Use
  Company Number: 1000021154

PATIENT
  Age: 60 Year
  Sex: Male
  Weight: 86 kg

DRUGS (12)
  1. CITALOPRAM (CITALOPRAM) (20 MILLIGRAM) (CITALOPRAM) [Concomitant]
  2. TETRAZEPAM (TETRAZEPAM) (50 MILLIGRAM) (TETRAZEPAM) [Concomitant]
  3. SPIRIVA (TIOTROPIUM BROMIDE) (18 MICROGRAM) (TIOTROPIUM BROMIDE) [Concomitant]
  4. SALBUTAMOL (SALBUTAMOL) (SALBUTAMOL) [Concomitant]
  5. ROFLUMILAST (ROFLUMILAST) (TABLETS) [Suspect]
     Indication: CHRONIC OBSTRUCTIVE PULMONARY DISEASE
     Dosage: 500 MCG (500 MCG, 1 IN 1 D), ORAL
     Route: 048
     Dates: start: 20110427, end: 20110507
  6. DOXEPIN (DOXEPIN) (25 MILLIGRAM) (DOXEPIN) [Concomitant]
  7. PANTOPRAZOL (PANTOPRAZOLE SODIUM ) (40 MILLIGRAM) (PANTOPRAZOLE SODIUM [Concomitant]
  8. FLUCONAZOLE (FLUCONAZOLE) (100 MILLIGRAM) (FLUCONAZOLE) [Concomitant]
  9. TORASEMID (TORSEMIDE) (10 MILLIGRAM) (TORSEMIDE) [Concomitant]
  10. ATMADISC (SERETIDE MITE) (SERETIDE MITE) [Concomitant]
  11. FOSTER (PIROXICAM) (PIROXICAM) [Concomitant]
  12. DEXAMETHASONE  (DEXAMETHASONE) (4 MILLIGRAM) (DEXAMEHTASONE) [Concomitant]

REACTIONS (13)
  - HYPERTENSION [None]
  - DIARRHOEA [None]
  - INSOMNIA [None]
  - DEPRESSION [None]
  - BLOOD CHOLESTEROL INCREASED [None]
  - ASPARTATE AMINOTRANSFERASE INCREASED [None]
  - FLUID RETENTION [None]
  - HEPATIC ENZYME INCREASED [None]
  - NAUSEA [None]
  - VOMITING [None]
  - GAMMA-GLUTAMYLTRANSFERASE INCREASED [None]
  - TACHYCARDIA [None]
  - SUICIDAL IDEATION [None]
